FAERS Safety Report 20174511 (Version 1)
Quarter: 2021Q4

REPORT INFORMATION
  Report Type: Spontaneous
  Country: US (occurrence: US)
  Receive Date: 20211213
  Receipt Date: 20211213
  Transmission Date: 20220303
  Serious: Yes (Hospitalization)
  Sender: FDA-Public Use
  Company Number: US-JNJFOC-20211203623

PATIENT
  Age: 41 Year
  Sex: Female
  Weight: 69 kg

DRUGS (1)
  1. TYLENOL [Suspect]
     Active Substance: ACETAMINOPHEN
     Indication: Toothache
     Dosage: UNKNOWN DOSE
     Route: 048
     Dates: end: 20030220

REACTIONS (7)
  - Staphylococcal infection [Recovered/Resolved]
  - Escherichia infection [Recovered/Resolved]
  - Acute hepatic failure [Not Recovered/Not Resolved]
  - Acute kidney injury [Recovered/Resolved]
  - Pleural effusion [Not Recovered/Not Resolved]
  - Pancreatitis [Not Recovered/Not Resolved]
  - Overdose [Not Recovered/Not Resolved]

NARRATIVE: CASE EVENT DATE: 20030221
